FAERS Safety Report 11939085 (Version 1)
Quarter: 2016Q1

REPORT INFORMATION
  Report Type: Spontaneous
  Country: CN (occurrence: CN)
  Receive Date: 20160122
  Receipt Date: 20160122
  Transmission Date: 20160526
  Serious: Yes (Hospitalization)
  Sender: FDA-Public Use
  Company Number: CN-PFIZER INC-2016026476

PATIENT
  Age: 5 Month
  Sex: Female
  Weight: 6.8 kg

DRUGS (2)
  1. FORTUM /00559701/ [Concomitant]
     Active Substance: CEFTAZIDIME
     Indication: ANTI-INFECTIVE THERAPY
     Dosage: 0.4 G, 2X/DAY
     Route: 041
     Dates: start: 20150706, end: 20150706
  2. NORVASC [Suspect]
     Active Substance: AMLODIPINE BESYLATE
     Indication: HYPERTENSION
     Dosage: 5 MG, 1X/DAY
     Route: 064
     Dates: start: 20140402, end: 20150706

REACTIONS (4)
  - Maternal exposure during pregnancy [Not Recovered/Not Resolved]
  - Musculoskeletal stiffness [Not Recovered/Not Resolved]
  - Pyrexia [Not Recovered/Not Resolved]
  - Opisthotonus [Not Recovered/Not Resolved]

NARRATIVE: CASE EVENT DATE: 20150705
